FAERS Safety Report 9591862 (Version 2)
Quarter: 2013Q4

REPORT INFORMATION
  Report Type: Spontaneous
  Country: US (occurrence: US)
  Receive Date: 20131004
  Receipt Date: 20131004
  Transmission Date: 20140711
  Serious: Yes (Other)
  Sender: FDA-Public Use
  Company Number: US-AMGEN-USASP2012075160

PATIENT
  Age: 76 Year
  Sex: Female
  Weight: 74.38 kg

DRUGS (1)
  1. ENBREL [Suspect]
     Indication: RHEUMATOID ARTHRITIS
     Dosage: 50 MG, QWK
     Route: 058
     Dates: start: 201201, end: 201209

REACTIONS (2)
  - Squamous cell carcinoma of skin [Recovered/Resolved]
  - Skin discolouration [Not Recovered/Not Resolved]
